FAERS Safety Report 7579962-X (Version None)
Quarter: 2011Q2

REPORT INFORMATION
  Report Type: 
  Country: None (occurrence: None)
  Receive Date: 20110622
  Receipt Date: 20110609
  Transmission Date: 20111010
  Serious: Yes (Death)
  Sender: FDA-Public Use
  Company Number: GB-DEXPHARM-20110737

PATIENT
  Age: 30 Year
  Sex: Female

DRUGS (4)
  1. COLGATE-PALMOLIVE UK PERIOGARD ORAL RINSE [Suspect]
     Dosage: 0.2%
  2. CHLORHEXIDINE GLUCONATE [Suspect]
     Indication: POSTOPERATIVE WOUND INFECTION
     Dosage: ORAL
     Route: 048
  3. CHLORHEXIDINE GLUCONATE [Suspect]
     Indication: MUCOSAL INFLAMMATION
     Dosage: ORAL
     Route: 048
  4. CHLORHEXIDINE GLUCONATE [Suspect]
     Indication: GINGIVITIS
     Dosage: ORAL
     Route: 048

REACTIONS (4)
  - LOSS OF CONSCIOUSNESS [None]
  - PRURITUS [None]
  - ANAPHYLACTIC SHOCK [None]
  - FEELING HOT [None]
